FAERS Safety Report 17166383 (Version 7)
Quarter: 2020Q2

REPORT INFORMATION
  Report Type: Report from Study
  Country: CN (occurrence: CN)
  Receive Date: 20191217
  Receipt Date: 20200601
  Transmission Date: 20200713
  Serious: Yes (Hospitalization)
  Sender: FDA-Public Use
  Company Number: NVSC2019CN057966

PATIENT
  Age: 48 Year
  Sex: Female
  Weight: 66.5 kg

DRUGS (34)
  1. SALBUTAMOL SULFATE [Concomitant]
     Active Substance: ALBUTEROL SULFATE
     Indication: PRODUCT USED FOR UNKNOWN INDICATION
     Dosage: 10 MG, TID
     Route: 065
     Dates: start: 20191130
  2. CALCIUM GLUCONATE. [Concomitant]
     Active Substance: CALCIUM GLUCONATE
     Indication: DERMATITIS ALLERGIC
     Route: 065
     Dates: start: 20191204, end: 20191204
  3. PROMETHAZINE HYDROCHLORIDE. [Concomitant]
     Active Substance: PROMETHAZINE HYDROCHLORIDE
     Indication: PROPHYLAXIS
     Dosage: UNK
     Route: 065
     Dates: start: 20191202, end: 20191202
  4. POTASSIUM CHLORIDE. [Concomitant]
     Active Substance: POTASSIUM CHLORIDE
     Indication: HYPOKALAEMIA
     Dosage: UNK
     Route: 065
     Dates: start: 20191203, end: 20191204
  5. ACETYLCYSTEINE. [Concomitant]
     Active Substance: ACETYLCYSTEINE
     Indication: PRODUCTIVE COUGH
     Dosage: UNK
     Route: 065
     Dates: start: 20191130, end: 20191204
  6. SPLEEN EXTRACT, PROTEINFREE [Concomitant]
     Indication: IMMUNISATION
     Dosage: 10 MG, QD
     Route: 030
     Dates: start: 20191130
  7. BUDESONIDE. [Concomitant]
     Active Substance: BUDESONIDE
     Indication: MUSCLE SPASMS
     Dosage: 02 MG, TID
     Route: 055
     Dates: start: 20191130, end: 20191212
  8. MOXIFLOXACIN HYDROCHLORIDE. [Concomitant]
     Active Substance: MOXIFLOXACIN HYDROCHLORIDE
     Indication: PNEUMONIA
  9. RECOMBINANT HUMAN GRANULOCYTE COLONY STIMULAT [Concomitant]
     Indication: PRODUCT USED FOR UNKNOWN INDICATION
     Dosage: 300 UG, QD
     Route: 058
     Dates: start: 20191202
  10. RECOMBINANT HUMAN INTERLEUKIN-11 [Concomitant]
     Active Substance: OPRELVEKIN
     Dosage: 113 MG, QD
     Route: 058
     Dates: start: 20191203
  11. LORATADINE. [Concomitant]
     Active Substance: LORATADINE
     Indication: DERMATITIS ALLERGIC
     Dosage: UNK
     Route: 065
     Dates: start: 20191204, end: 20191212
  12. MOXIFLOXACIN HYDROCHLORIDE. [Concomitant]
     Active Substance: MOXIFLOXACIN HYDROCHLORIDE
     Indication: ANTI-INFECTIVE THERAPY
     Dosage: 0.4 G, QD2SDO
     Route: 042
     Dates: start: 20191201, end: 20191211
  13. IPRATROPIUM BROMIDE. [Concomitant]
     Active Substance: IPRATROPIUM BROMIDE
     Indication: PNEUMONIA
  14. ACETYLCYSTEINE. [Concomitant]
     Active Substance: ACETYLCYSTEINE
     Indication: PNEUMONIA
  15. HUMAN SERUM ALBUMIN [Concomitant]
     Active Substance: ALBUMIN HUMAN
     Indication: HYPOALBUMINAEMIA
     Dosage: 10 G, QD
     Route: 065
     Dates: start: 20191201, end: 20191202
  16. RECOMBINANT HUMAN INTERLEUKIN-11 [Concomitant]
     Active Substance: OPRELVEKIN
     Indication: PRODUCT USED FOR UNKNOWN INDICATION
     Dosage: 113 MG, QD
     Route: 058
     Dates: start: 20191202
  17. GANCICLOVIR SODIUM. [Concomitant]
     Active Substance: GANCICLOVIR SODIUM
     Indication: PNEUMONIA
  18. RIBOCICLIB. [Suspect]
     Active Substance: RIBOCICLIB
     Indication: BREAST CANCER
     Dosage: UNK
     Route: 048
     Dates: start: 20190424
  19. COMPARATOR LETROZOLE [Suspect]
     Active Substance: LETROZOLE
     Indication: BREAST CANCER
     Dosage: UNK
     Route: 065
     Dates: start: 20190424
  20. MEDROXOL [Concomitant]
     Indication: PRODUCT USED FOR UNKNOWN INDICATION
     Dosage: UNK
     Route: 065
     Dates: start: 20191212
  21. INTERLEUKIN-11 [Concomitant]
     Active Substance: OPRELVEKIN
     Indication: PLATELET COUNT DECREASED
     Route: 065
     Dates: start: 20191202, end: 20191206
  22. AESCUVEN [Concomitant]
     Indication: THROMBOSIS
     Dosage: UNK
     Route: 065
     Dates: start: 20191204
  23. VITAMIN C [Concomitant]
     Active Substance: ASCORBIC ACID
     Indication: DERMATITIS ALLERGIC
     Route: 065
     Dates: start: 20191204, end: 20191204
  24. BUDESONIDE. [Concomitant]
     Active Substance: BUDESONIDE
     Indication: PNEUMONIA
  25. RIVAROXABAN [Concomitant]
     Active Substance: RIVAROXABAN
     Indication: THROMBOSIS
     Route: 065
     Dates: start: 20191204
  26. GANCICLOVIR SODIUM. [Concomitant]
     Active Substance: GANCICLOVIR SODIUM
     Indication: ANTI-INFECTIVE THERAPY
     Dosage: 0.25 G
     Route: 042
     Dates: start: 20191201, end: 20191211
  27. IPRATROPIUM BROMIDE. [Concomitant]
     Active Substance: IPRATROPIUM BROMIDE
     Indication: MUSCLE SPASMS
     Dosage: 0.5 MG, TID
     Route: 065
     Dates: start: 20191130, end: 20191212
  28. COMPARATOR GOSERELIN [Suspect]
     Active Substance: GOSERELIN
     Indication: BREAST CANCER
     Dosage: UNK
     Route: 065
     Dates: start: 20190424
  29. RECOMBINANT HUMAN GRANULOCYTE COLONY STIMULAT [Concomitant]
     Dosage: 300 UG, QD
     Route: 058
     Dates: start: 20191203
  30. SODIUM CHLORIDE. [Concomitant]
     Active Substance: SODIUM CHLORIDE
     Indication: ELECTROLYTE IMBALANCE
     Dosage: 2.3 G, QD
     Route: 065
     Dates: start: 20191130
  31. MOMETASONE FUROATE. [Concomitant]
     Active Substance: MOMETASONE FUROATE
     Indication: DERMATITIS ALLERGIC
     Dosage: UNK
     Route: 065
     Dates: start: 20191204, end: 20191210
  32. ENEMA (SODIUM PHOSPHATE, DIBASIC\SODIUM PHOSPHATE, MONOBASIC) [Concomitant]
     Active Substance: SODIUM PHOSPHATE, DIBASIC\SODIUM PHOSPHATE, MONOBASIC
     Indication: CONSTIPATION
     Dosage: UNK
     Route: 065
     Dates: start: 20191204, end: 20191204
  33. DOXOFYLLINE [Concomitant]
     Active Substance: DOXOFYLLINE
     Indication: MUSCLE SPASMS
     Dosage: 0.3 G
     Route: 042
     Dates: start: 20191201, end: 20191211
  34. DOXOFYLLINE [Concomitant]
     Active Substance: DOXOFYLLINE
     Indication: PNEUMONIA

REACTIONS (1)
  - Pneumonia [Not Recovered/Not Resolved]

NARRATIVE: CASE EVENT DATE: 20191130
